FAERS Safety Report 4912312-3 (Version None)
Quarter: 2006Q1

REPORT INFORMATION
  Report Type: 
  Country: None (occurrence: None)
  Receive Date: 20060215
  Receipt Date: 20060127
  Transmission Date: 20060701
  Serious: Yes (Other)
  Sender: FDA-Public Use
  Company Number: US-AVENTIS-200611083US

PATIENT
  Sex: Male
  Weight: 109.08 kg

DRUGS (9)
  1. LOVENOX [Suspect]
     Indication: PROPHYLAXIS
     Route: 058
     Dates: start: 20040327, end: 20040101
  2. COUMADIN [Concomitant]
  3. FUROSEMIDE [Concomitant]
  4. DIGITEK [Concomitant]
  5. K-TAB [Concomitant]
  6. METOPROLOL [Concomitant]
  7. L-ARGININE [Concomitant]
  8. NIACIN [Concomitant]
  9. UNKNOWN DRUG [Concomitant]

REACTIONS (3)
  - HAEMATOMA [None]
  - HAEMORRHAGE [None]
  - MOVEMENT DISORDER [None]
